FAERS Safety Report 5764947-6 (Version None)
Quarter: 2008Q2

REPORT INFORMATION
  Report Type: 
  Country: None (occurrence: None)
  Receive Date: 20080611
  Receipt Date: 20080530
  Transmission Date: 20081010
  Serious: Yes (Hospitalization)
  Sender: FDA-Public Use
  Company Number: B0520016A

PATIENT
  Age: 54 Year
  Sex: Male
  Weight: 68 kg

DRUGS (6)
  1. KIVEXA [Suspect]
     Indication: HIV INFECTION
     Dosage: 1TAB PER DAY
     Dates: start: 20071105
  2. ANTIRETROVIRAL MEDICATIONS [Concomitant]
     Indication: HIV INFECTION
  3. KALETRA [Concomitant]
     Dosage: 2TAB TWICE PER DAY
     Dates: start: 20071105
  4. SERETIDE [Concomitant]
     Dosage: 2PUFF TWICE PER DAY
  5. DUOVENT [Concomitant]
  6. ESTIVAN [Concomitant]
     Dosage: 10MG PER DAY

REACTIONS (5)
  - HAEMOLYTIC ANAEMIA [None]
  - HAEMOLYTIC URAEMIC SYNDROME [None]
  - RED BLOOD CELL SCHISTOCYTES PRESENT [None]
  - RENAL FAILURE [None]
  - THROMBOCYTOPENIA [None]
